FAERS Safety Report 9586191 (Version 1)
Quarter: 2013Q4

REPORT INFORMATION
  Report Type: Spontaneous
  Country: US (occurrence: None)
  Receive Date: 20131002
  Receipt Date: 20131002
  Transmission Date: 20140711
  Serious: Yes (Disabling)
  Sender: FDA-Public Use
  Company Number: None

PATIENT
  Age: 62 Year
  Sex: Female
  Weight: 110.22 kg

DRUGS (1)
  1. AVELOX [Suspect]
     Dosage: ONE PILL  ONCE DAILY  TAKEN BY MOUTH
     Route: 048
     Dates: start: 20130914, end: 20130927

REACTIONS (2)
  - Pain in extremity [None]
  - Tendon rupture [None]
